FAERS Safety Report 7607935-7 (Version None)
Quarter: 2011Q3

REPORT INFORMATION
  Report Type: 
  Country: None (occurrence: None)
  Receive Date: 20110714
  Receipt Date: 20110705
  Transmission Date: 20111222
  Serious: Yes (Other)
  Sender: FDA-Public Use
  Company Number: US-BAYER-201034869NA

PATIENT
  Age: 40 Year
  Sex: Female
  Weight: 93.424 kg

DRUGS (7)
  1. PROTONIX [Concomitant]
  2. ATENOLOL [Concomitant]
  3. IBUPROFEN [Concomitant]
  4. YASMIN [Suspect]
     Dosage: UNK
     Dates: start: 20030101, end: 20060101
  5. TENORMIN [Concomitant]
     Indication: HYPERTENSION
  6. XENICAL [Concomitant]
     Indication: WEIGHT FLUCTUATION
     Dosage: UNK
     Dates: start: 20020101
  7. DYAZIDE [Concomitant]
     Indication: HYPERTENSION
     Dosage: UNK

REACTIONS (2)
  - CHOLECYSTECTOMY [None]
  - CHOLECYSTITIS CHRONIC [None]
